FAERS Safety Report 5191129-1 (Version None)
Quarter: 2006Q4

REPORT INFORMATION
  Report Type: 
  Country: None (occurrence: None)
  Receive Date: 20061226
  Receipt Date: 20061215
  Transmission Date: 20070319
  Serious: Yes (Other)
  Sender: FDA-Public Use
  Company Number: PHNU2006DE04247

PATIENT
  Age: 59 Year
  Sex: Female

DRUGS (1)
  1. TERBINAFINE [Suspect]
     Indication: NAIL TINEA
     Dosage: 250 MG/DAY
     Route: 048
     Dates: start: 20051224, end: 20060105

REACTIONS (6)
  - DEPRESSION [None]
  - FEELING ABNORMAL [None]
  - LIMB DISCOMFORT [None]
  - MENTAL IMPAIRMENT [None]
  - MOOD ALTERED [None]
  - SUICIDAL IDEATION [None]
